FAERS Safety Report 20749121 (Version 2)
Quarter: 2022Q2

REPORT INFORMATION
  Report Type: Report from Study
  Country: CN (occurrence: CN)
  Receive Date: 20220426
  Receipt Date: 20220513
  Transmission Date: 20220721
  Serious: Yes (Other)
  Sender: FDA-Public Use
  Company Number: CN-TAKEDA-2022TUS025151

PATIENT
  Age: 73 Year
  Sex: Female
  Weight: 53 kg

DRUGS (2)
  1. IXAZOMIB [Suspect]
     Active Substance: IXAZOMIB
     Indication: Plasma cell myeloma
     Dosage: 3 MILLIGRAM
     Route: 048
     Dates: start: 20220315, end: 20220408
  2. OMEPRAZOLE [Concomitant]
     Active Substance: OMEPRAZOLE
     Indication: Prophylaxis
     Dosage: 20 MILLIGRAM, QD
     Route: 048
     Dates: start: 20220408

REACTIONS (3)
  - Anaemia [Not Recovered/Not Resolved]
  - Platelet count decreased [Recovering/Resolving]
  - Off label use [Unknown]

NARRATIVE: CASE EVENT DATE: 20220406
